FAERS Safety Report 9722666 (Version 2)
Quarter: 2013Q4

REPORT INFORMATION
  Report Type: Spontaneous
  Country: JP (occurrence: JP)
  Receive Date: 20131202
  Receipt Date: 20131209
  Transmission Date: 20140711
  Serious: Yes (Death, Other)
  Sender: FDA-Public Use
  Company Number: JP-BAYER-2013-143189

PATIENT
  Age: 53 Year
  Sex: Male

DRUGS (7)
  1. NEXAVAR [Suspect]
     Indication: CHOLANGIOCARCINOMA
     Dosage: 400 MG DAILY
     Route: 048
     Dates: start: 20121220, end: 20130211
  2. NEXAVAR [Suspect]
     Indication: CHOLANGIOCARCINOMA
     Dosage: 400 MG DAILY
     Dates: start: 20130311, end: 20130321
  3. NEXAVAR [Suspect]
     Indication: CHOLANGIOCARCINOMA
     Dosage: 600 MG DAILY
     Dates: start: 20130322, end: 20130405
  4. NEXAVAR [Suspect]
     Indication: CHOLANGIOCARCINOMA
     Dosage: 800 MG DAILY
     Dates: start: 20130405, end: 20130419
  5. GEMCITABINE HYDROCHLORIDE [Concomitant]
     Dosage: UNK
  6. TS 1 [Concomitant]
     Route: 048
  7. CISPLATIN [Concomitant]
     Dosage: UNK

REACTIONS (5)
  - Metastases to bone [None]
  - Back pain [None]
  - Off label use [None]
  - Cholangiocarcinoma [Fatal]
  - Eastern Cooperative Oncology Group performance status worsened [Fatal]
